FAERS Safety Report 7984724-5 (Version None)
Quarter: 2011Q4

REPORT INFORMATION
  Report Type: 
  Country: None (occurrence: None)
  Receive Date: 20111216
  Receipt Date: 20111213
  Transmission Date: 20120403
  Serious: Yes (Hospitalization)
  Sender: FDA-Public Use
  Company Number: US-AMGEN-USACT2011053592

PATIENT
  Age: 95 Year
  Sex: Female

DRUGS (25)
  1. ISOSORBIDE DINITRATE [Concomitant]
  2. SODIUM CHLORIDE [Concomitant]
  3. LASIX [Concomitant]
     Dosage: 40 MG, BID
     Route: 042
     Dates: start: 20111017
  4. LUMIGAN [Concomitant]
  5. HYDROCODONE BITARTRATE [Concomitant]
  6. DOCUSATE [Concomitant]
  7. LORTAB [Concomitant]
  8. BLINDED DARBEPOETIN ALFA [Suspect]
     Dates: start: 20070731, end: 20111006
  9. PLAVIX [Concomitant]
  10. INSULIN [Concomitant]
  11. CALTRATE D [Concomitant]
  12. COLACE [Concomitant]
  13. EVISTA [Concomitant]
  14. BLINDED DARBEPOETIN ALFA [Suspect]
     Indication: CARDIAC FAILURE
     Dates: start: 20070731, end: 20111006
  15. PEPCID [Concomitant]
  16. DITROPAN [Concomitant]
  17. ASPIRIN [Concomitant]
  18. COREG [Concomitant]
  19. DIGOXIN [Concomitant]
  20. BLINDED PLACEBO [Suspect]
     Indication: CARDIAC FAILURE
     Dates: start: 20070731, end: 20111006
  21. PROTONIX [Concomitant]
     Dosage: 40 MG, UNK
     Route: 042
  22. ALLEGRA [Concomitant]
  23. AMIODARONE HCL [Concomitant]
  24. HYDRALAZINE HCL [Concomitant]
  25. ALDACTONE [Concomitant]

REACTIONS (3)
  - RENAL FAILURE ACUTE [None]
  - CARDIAC FAILURE CONGESTIVE [None]
  - RESPIRATORY ALKALOSIS [None]
